FAERS Safety Report 6982072-3 (Version None)
Quarter: 2010Q3

REPORT INFORMATION
  Report Type: 
  Country: None (occurrence: None)
  Receive Date: 20100909
  Receipt Date: 20100408
  Transmission Date: 20110219
  Serious: Yes (Hospitalization)
  Sender: FDA-Public Use
  Company Number: 007695

PATIENT
  Age: 80 Year
  Sex: Male

DRUGS (7)
  1. PLETAL [Suspect]
     Indication: ARTERIOSCLEROSIS OBLITERANS
     Dosage: 100 MG, BID ORAL
     Route: 048
     Dates: start: 20080709, end: 20090128
  2. PRAVARON (PRAVASTATIN SODIUM) TABLET [Concomitant]
  3. BAYMYCARD (NISOLDIPINE) TABLET [Concomitant]
  4. ACECOL (TEMOCAPRIL HYDROCHLORIDE) TABLET [Concomitant]
  5. NICORANDIS (NICORANDIL) TABLET [Concomitant]
  6. ULCERLMIN (SUCRALFATE) UNKNOWN [Concomitant]
  7. SIGMART (NICORANDIL) UNKNOWN [Concomitant]

REACTIONS (5)
  - CARDIAC FAILURE [None]
  - CONDITION AGGRAVATED [None]
  - MYOCARDIAL INFARCTION [None]
  - PULMONARY CONGESTION [None]
  - RALES [None]
